FAERS Safety Report 17886144 (Version 1)
Quarter: 2020Q2

REPORT INFORMATION
  Report Type: Report from Study
  Country: US (occurrence: US)
  Receive Date: 20200611
  Receipt Date: 20200611
  Transmission Date: 20200714
  Serious: Yes (Death, Hospitalization)
  Sender: FDA-Public Use
  Company Number: US-BAUSCH-BL-2020-016769

PATIENT
  Age: 78 Year
  Sex: Female

DRUGS (1)
  1. XIFAXAN [Suspect]
     Active Substance: RIFAXIMIN
     Indication: HEPATIC CIRRHOSIS
     Route: 048

REACTIONS (2)
  - Death [Fatal]
  - Melaena [Unknown]

NARRATIVE: CASE EVENT DATE: 20200603
